FAERS Safety Report 9797528 (Version 2)
Quarter: 2015Q2

REPORT INFORMATION
  Report Type: Spontaneous
  Country: IN (occurrence: IN)
  Receive Date: 20140106
  Receipt Date: 20150519
  Transmission Date: 20150821
  Serious: Yes (Other)
  Sender: FDA-Public Use
  Company Number: PHHY2013IN151418

PATIENT
  Age: 75 Year
  Sex: Male

DRUGS (5)
  1. CARBIDOPA/LEVODOPA [Concomitant]
     Active Substance: CARBIDOPA\LEVODOPA
     Indication: PARKINSON^S DISEASE
     Route: 065
  2. CLONAZEPAM. [Concomitant]
     Active Substance: CLONAZEPAM
     Indication: MAJOR DEPRESSION
     Dosage: 0.75 MG, QD
     Route: 065
  3. AMLODIPINE W/ATENOLOL [Concomitant]
     Indication: HYPERTENSION
     Route: 065
  4. BUPROPION [Suspect]
     Active Substance: BUPROPION
     Indication: MAJOR DEPRESSION
     Dosage: 75 MG, QD
     Route: 065
  5. BUPROPION [Suspect]
     Active Substance: BUPROPION
     Dosage: 300 MG, QD
     Route: 065

REACTIONS (1)
  - Hyponatraemia [Recovered/Resolved]
